FAERS Safety Report 16305702 (Version 1)
Quarter: 2019Q2

REPORT INFORMATION
  Report Type: Spontaneous
  Country: AT (occurrence: AT)
  Receive Date: 20190513
  Receipt Date: 20190513
  Transmission Date: 20190711
  Serious: Yes (Death, Other)
  Sender: FDA-Public Use
  Company Number: AT-ELI_LILLY_AND_COMPANY-AT200512002650

PATIENT
  Age: 4 Year
  Sex: Female
  Weight: 19.5 kg

DRUGS (1)
  1. SOMATROPIN. [Suspect]
     Active Substance: SOMATROPIN
     Indication: PRADER-WILLI SYNDROME
     Dosage: 0.24 MG/KG, WEEKLY (1/W)

REACTIONS (6)
  - Respiratory disorder [Unknown]
  - Dyspnoea [Unknown]
  - Cardiac failure [Fatal]
  - Sleep apnoea syndrome [Unknown]
  - Fluid retention [Unknown]
  - Pulmonary arterial pressure increased [Not Recovered/Not Resolved]
